FAERS Safety Report 22220686 (Version 1)
Quarter: 2023Q2

REPORT INFORMATION
  Report Type: Spontaneous
  Country: GB (occurrence: GB)
  Receive Date: 20230417
  Receipt Date: 20230417
  Transmission Date: 20230721
  Serious: Yes (Other)
  Sender: FDA-Public Use
  Company Number: GB-MHRA-MED-202303161013538280-GNDHL

PATIENT
  Age: 55 Year
  Sex: Female

DRUGS (2)
  1. OZEMPIC [Suspect]
     Active Substance: SEMAGLUTIDE
     Indication: Product used for unknown indication
     Dosage: 25 X 4 WEEKS
  2. OZEMPIC [Suspect]
     Active Substance: SEMAGLUTIDE
     Dosage: 50 X 1 WEEK

REACTIONS (6)
  - Discomfort [Unknown]
  - Gastrointestinal hypomotility [Unknown]
  - Peripheral swelling [Unknown]
  - Constipation [Not Recovered/Not Resolved]
  - Abdominal distension [Unknown]
  - Medication error [Unknown]

NARRATIVE: CASE EVENT DATE: 20230301
